FAERS Safety Report 11813469 (Version 1)
Quarter: 2015Q4

REPORT INFORMATION
  Report Type: Spontaneous
  Country: US (occurrence: None)
  Receive Date: 20151208
  Receipt Date: 20151208
  Transmission Date: 20160305
  Serious: Yes (Disabling)
  Sender: FDA-Public Use
  Company Number: None

PATIENT
  Age: 11 Year
  Sex: Male

DRUGS (11)
  1. SILVER NITRATE 600 PARTS PER MILLION (PPM) ANGSTROMS MINERALS [Suspect]
     Active Substance: SILVER NITRATE
     Indication: CROHN^S DISEASE
     Dosage: 1/2 TO 1 TEASPOON
     Route: 048
     Dates: start: 2010, end: 2015
  2. VITAMIN C [Concomitant]
     Active Substance: ASCORBIC ACID
  3. REMICADE [Concomitant]
     Active Substance: INFLIXIMAB
  4. HOME MEDICATIONS [Concomitant]
  5. HYPOTHALMEX [Concomitant]
  6. GI  PRO CHILD [Concomitant]
  7. PROBIOTICS [Concomitant]
     Active Substance: PROBIOTICS NOS
  8. PROZYMES [Concomitant]
  9. GALACTAN [Concomitant]
  10. CLOBETASOL PROPIONATE. [Concomitant]
     Active Substance: CLOBETASOL PROPIONATE
  11. DRIED KALE CAPSULES [Concomitant]

REACTIONS (7)
  - Incorrect route of drug administration [None]
  - Drug level increased [None]
  - Argyria [None]
  - No therapeutic response [None]
  - Crohn^s disease [None]
  - Cyanosis [None]
  - Pallor [None]

NARRATIVE: CASE EVENT DATE: 20150619
